FAERS Safety Report 24680766 (Version 1)
Quarter: 2024Q4

REPORT INFORMATION
  Report Type: Spontaneous
  Country: DE (occurrence: DE)
  Receive Date: 20241129
  Receipt Date: 20241129
  Transmission Date: 20250114
  Serious: Yes (Other)
  Sender: TEVA
  Company Number: None

PATIENT
  Sex: Male

DRUGS (1)
  1. VALPROIC ACID [Suspect]
     Active Substance: VALPROIC ACID
     Indication: Product used for unknown indication
     Dosage: VALPROAT CHRONO
     Route: 064

REACTIONS (11)
  - Autism spectrum disorder [Unknown]
  - Anticonvulsant drug level increased [Recovered/Resolved]
  - Developmental delay [Unknown]
  - Feeling cold [Recovered/Resolved]
  - Dyslexia [Unknown]
  - Epilepsy [Recovered/Resolved]
  - Screaming [Recovered/Resolved]
  - Foetal exposure during pregnancy [Unknown]
  - Muscle spasms [Recovered/Resolved]
  - Epilepsy [Unknown]
  - Withdrawal syndrome [Recovered/Resolved]

NARRATIVE: CASE EVENT DATE: 20140101
